FAERS Safety Report 16009566 (Version 1)
Quarter: 2019Q1

REPORT INFORMATION
  Report Type: Spontaneous
  Country: US (occurrence: US)
  Receive Date: 20190226
  Receipt Date: 20190226
  Transmission Date: 20190418
  Serious: No
  Sender: FDA-Public Use
  Company Number: US-AUROBINDO-AUR-APL-2018-049082

PATIENT
  Age: 69 Year

DRUGS (1)
  1. VALSARTAN 320MG [Suspect]
     Active Substance: VALSARTAN
     Indication: PRODUCT USED FOR UNKNOWN INDICATION
     Dosage: UNK
     Route: 065

REACTIONS (4)
  - Fatigue [Unknown]
  - Irritable bowel syndrome [Unknown]
  - Headache [Unknown]
  - Loss of personal independence in daily activities [Unknown]
